FAERS Safety Report 6751342-6 (Version None)
Quarter: 2010Q2

REPORT INFORMATION
  Report Type: 
  Country: None (occurrence: None)
  Receive Date: 20100527
  Receipt Date: 20100428
  Transmission Date: 20101027
  Serious: Yes (Other)
  Sender: FDA-Public Use
  Company Number: LEO-2010-00372

PATIENT
  Sex: Female

DRUGS (1)
  1. TACLONEX SCALP [Suspect]
     Indication: PSORIASIS
     Dosage: 0.4286 APPLICATORFULL (1 APPLICATORFULL,3 IN 1 WK)

REACTIONS (1)
  - GLAUCOMA [None]
